FAERS Safety Report 11507660 (Version 1)
Quarter: 2015Q3

REPORT INFORMATION
  Report Type: Spontaneous
  Country: US (occurrence: US)
  Receive Date: 20150903
  Receipt Date: 20150903
  Transmission Date: 20151125
  Serious: No
  Sender: FDA-Public Use
  Company Number: US-ELI_LILLY_AND_COMPANY-US200909001161

PATIENT
  Age: 67 Year
  Sex: Female

DRUGS (5)
  1. PLAVIX [Concomitant]
     Active Substance: CLOPIDOGREL BISULFATE
  2. METFORMIN [Concomitant]
     Active Substance: METFORMIN HYDROCHLORIDE
  3. HUMALOG [Suspect]
     Active Substance: INSULIN LISPRO
     Dosage: UNK, AS NEEDED
     Dates: start: 20090727
  4. NOVOLIN [Concomitant]
     Active Substance: INSULIN HUMAN
  5. LANTUS [Concomitant]
     Active Substance: INSULIN GLARGINE

REACTIONS (11)
  - Tremor [Unknown]
  - Hypertension [Unknown]
  - Blood glucose increased [Not Recovered/Not Resolved]
  - Drug hypersensitivity [Unknown]
  - Memory impairment [Not Recovered/Not Resolved]
  - Memory impairment [Unknown]
  - Malaise [Unknown]
  - Pain in extremity [Not Recovered/Not Resolved]
  - Drug dose omission [Unknown]
  - Blood glucose decreased [Recovered/Resolved]
  - Incorrect dose administered [Unknown]

NARRATIVE: CASE EVENT DATE: 2009
